FAERS Safety Report 8016765-6 (Version None)
Quarter: 2012Q1

REPORT INFORMATION
  Report Type: 
  Country: None (occurrence: None)
  Receive Date: 20120102
  Receipt Date: 20111225
  Transmission Date: 20120608
  Serious: No
  Sender: FDA-Public Use
  Company Number: US-BIOGENIDEC-2011BI048802

PATIENT
  Sex: Female

DRUGS (1)
  1. AVONEX [Suspect]
     Indication: PRODUCT USED FOR UNKNOWN INDICATION
     Route: 030

REACTIONS (2)
  - INFLUENZA LIKE ILLNESS [None]
  - INFLUENZA [None]
